FAERS Safety Report 19738325 (Version 1)
Quarter: 2021Q3

REPORT INFORMATION
  Report Type: Spontaneous
  Country: CN (occurrence: CN)
  Receive Date: 20210823
  Receipt Date: 20210823
  Transmission Date: 20211014
  Serious: Yes (Other)
  Sender: FDA-Public Use
  Company Number: CN-ORGANON-O2108CHN001131

PATIENT
  Age: 58 Year
  Sex: Male

DRUGS (2)
  1. BETAMETHASONE ACETATE (+) BETAMETHASONE SODIUM PHOSPHATE [Suspect]
     Active Substance: BETAMETHASONE ACETATE\BETAMETHASONE SODIUM PHOSPHATE
     Indication: DERMATITIS
     Dosage: UNK
     Route: 030
  2. BETAMETHASONE ACETATE (+) BETAMETHASONE SODIUM PHOSPHATE [Suspect]
     Active Substance: BETAMETHASONE ACETATE\BETAMETHASONE SODIUM PHOSPHATE
     Dosage: UNK

REACTIONS (2)
  - Cutaneous mucormycosis [Recovered/Resolved]
  - Trichophytosis [Recovered/Resolved]
